FAERS Safety Report 20151692 (Version 1)
Quarter: 2021Q4

REPORT INFORMATION
  Report Type: Spontaneous
  Country: US (occurrence: None)
  Receive Date: 20211206
  Receipt Date: 20211206
  Transmission Date: 20220303
  Serious: No
  Sender: FDA-Public Use
  Company Number: 2021A851847

PATIENT
  Sex: Male

DRUGS (1)
  1. FARXIGA [Suspect]
     Active Substance: DAPAGLIFLOZIN PROPANEDIOL
     Indication: Blood glucose abnormal
     Dosage: 5.0MG UNKNOWN
     Route: 048
     Dates: start: 20210928, end: 20211201

REACTIONS (1)
  - Penile oedema [Unknown]

NARRATIVE: CASE EVENT DATE: 20210101
